FAERS Safety Report 14223916 (Version 3)
Quarter: 2017Q4

REPORT INFORMATION
  Report Type: Spontaneous
  Country: IT (occurrence: IT)
  Receive Date: 20171126
  Receipt Date: 20171211
  Transmission Date: 20180321
  Serious: Yes (Other)
  Sender: FDA-Public Use
  Company Number: IT-009507513-1711ITA009236

PATIENT
  Age: 75 Year
  Sex: Female
  Weight: 60 kg

DRUGS (5)
  1. SINEMET [Suspect]
     Active Substance: CARBIDOPA\LEVODOPA
     Indication: PARKINSON^S DISEASE
     Dosage: 250 MG, QD
     Route: 048
     Dates: start: 20171101, end: 20171108
  2. DIETARY SUPPLEMENT (UNSPECIFIED) [Concomitant]
     Active Substance: DIETARY SUPPLEMENT
     Dosage: 20.4 G, DAILY
     Route: 048
  3. KANRENOL [Concomitant]
     Active Substance: CANRENOATE POTASSIUM
  4. MADOPAR [Concomitant]
     Active Substance: BENSERAZIDE HYDROCHLORIDE\LEVODOPA
     Dosage: UNK
     Dates: start: 20151101, end: 20171108
  5. LASIX [Concomitant]
     Active Substance: FUROSEMIDE

REACTIONS (3)
  - Peripheral swelling [Recovered/Resolved]
  - Hallucination [Recovered/Resolved]
  - Swelling face [Recovered/Resolved]

NARRATIVE: CASE EVENT DATE: 20171106
